FAERS Safety Report 6449024-3 (Version None)
Quarter: 2009Q4

REPORT INFORMATION
  Report Type: 
  Country: None (occurrence: None)
  Receive Date: 20091120
  Receipt Date: 20091113
  Transmission Date: 20100525
  Serious: Yes (Life-Threatening)
  Sender: FDA-Public Use
  Company Number: B0602930A

PATIENT
  Sex: Female
  Weight: 62 kg

DRUGS (1)
  1. ARIXTRA [Suspect]
     Indication: THROMBOSIS PROPHYLAXIS
     Dosage: 2.5MG PER DAY
     Route: 058
     Dates: start: 20091017, end: 20091019

REACTIONS (4)
  - ANAEMIA [None]
  - BLOOD PRESSURE DECREASED [None]
  - POST PROCEDURAL HAEMORRHAGE [None]
  - SHOCK [None]
